FAERS Safety Report 18548852 (Version 3)
Quarter: 2024Q3

REPORT INFORMATION
  Report Type: Report from Study
  Country: US (occurrence: US)
  Receive Date: 20201126
  Receipt Date: 20240808
  Transmission Date: 20241016
  Serious: Yes (Hospitalization, Disabling, Other)
  Sender: EMD SERONO INC
  Company Number: US-MERCK KGAA-9045300

PATIENT
  Age: 62 Year
  Sex: Female

DRUGS (4)
  1. REBIF [Suspect]
     Active Substance: INTERFERON BETA-1A
     Indication: Multiple sclerosis
     Route: 058
     Dates: start: 2004
  2. REBIF [Suspect]
     Active Substance: INTERFERON BETA-1A
     Route: 058
     Dates: start: 2011
  3. REBIF [Suspect]
     Active Substance: INTERFERON BETA-1A
     Route: 058
     Dates: start: 2012
  4. REBIF [Suspect]
     Active Substance: INTERFERON BETA-1A
     Route: 058
     Dates: start: 2014

REACTIONS (5)
  - Gait disturbance [Recovering/Resolving]
  - Extremity necrosis [Recovering/Resolving]
  - Knee arthroplasty [Recovering/Resolving]
  - Vein disorder [Unknown]
  - Dysstasia [Not Recovered/Not Resolved]

NARRATIVE: CASE EVENT DATE: 20160101
